FAERS Safety Report 19607433 (Version 2)
Quarter: 2021Q3

REPORT INFORMATION
  Report Type: Spontaneous
  Country: DE (occurrence: DE)
  Receive Date: 20210726
  Receipt Date: 20210728
  Transmission Date: 20211014
  Serious: No
  Sender: FDA-Public Use
  Company Number: DE-UCBSA-2021034578

PATIENT
  Sex: Female

DRUGS (2)
  1. RESTEX [Concomitant]
     Active Substance: BENSERAZIDE\LEVODOPA
     Indication: PRODUCT USED FOR UNKNOWN INDICATION
  2. NEUPRO [Suspect]
     Active Substance: ROTIGOTINE
     Indication: RESTLESS LEGS SYNDROME
     Dosage: 1 MILLIGRAM, ONCE DAILY (QD)
     Route: 062

REACTIONS (2)
  - Product adhesion issue [Unknown]
  - Therapeutic product ineffective [Unknown]
